FAERS Safety Report 8887489 (Version 1)
Quarter: 2012Q4

REPORT INFORMATION
  Report Type: Spontaneous
  Country: US (occurrence: None)
  Receive Date: 20121101
  Receipt Date: 20121101
  Transmission Date: 20130627
  Serious: Yes (Hospitalization)
  Sender: FDA-Public Use
  Company Number: None

PATIENT
  Age: 29 Year
  Sex: Male
  Weight: 71.8 kg

DRUGS (4)
  1. CLINDAMYCIN [Suspect]
     Indication: ROOT CANAL PROCEDURE
     Dosage: PO
RECENT
     Route: 048
  2. CLINDAMYCIN [Suspect]
     Indication: ARTIFICIAL CROWN PROCEDURE
     Dosage: PO
RECENT
     Route: 048
  3. LANTUS [Concomitant]
  4. HUMALOG [Concomitant]

REACTIONS (2)
  - Drug hypersensitivity [None]
  - Urine ketone body present [None]
